FAERS Safety Report 22721889 (Version 2)
Quarter: 2024Q2

REPORT INFORMATION
  Report Type: Report from Study
  Country: BR (occurrence: BR)
  Receive Date: 20230719
  Receipt Date: 20240624
  Transmission Date: 20240715
  Serious: Yes (Hospitalization, Other)
  Sender: FDA-Public Use
  Company Number: BR-ABBVIE-5330543

PATIENT
  Sex: Female
  Weight: 54 kg

DRUGS (4)
  1. HUMIRA [Suspect]
     Active Substance: ADALIMUMAB
     Indication: Juvenile idiopathic arthritis
     Route: 058
     Dates: start: 202208, end: 202301
  2. HUMIRA [Suspect]
     Active Substance: ADALIMUMAB
     Indication: Crohn^s disease
     Route: 058
     Dates: start: 20230714
  3. HUMIRA [Suspect]
     Active Substance: ADALIMUMAB
     Dosage: MISSED DOSE
     Route: 058
     Dates: start: 2023, end: 2023
  4. HUMIRA [Suspect]
     Active Substance: ADALIMUMAB
     Route: 058

REACTIONS (10)
  - Pulmonary pain [Recovered/Resolved]
  - Tuberculosis [Recovering/Resolving]
  - COVID-19 [Recovered/Resolved]
  - Pneumonia [Recovered/Resolved]
  - Pneumonia [Recovered/Resolved]
  - Device issue [Unknown]
  - Arthritis [Not Recovered/Not Resolved]
  - Diarrhoea [Recovered/Resolved]
  - Drug-induced liver injury [Recovered/Resolved]
  - Impaired quality of life [Not Recovered/Not Resolved]

NARRATIVE: CASE EVENT DATE: 20221101
